FAERS Safety Report 4969418-2 (Version None)
Quarter: 2006Q2

REPORT INFORMATION
  Report Type: 
  Country: None (occurrence: None)
  Receive Date: 20060406
  Receipt Date: 20060327
  Transmission Date: 20061013
  Serious: Yes (Other)
  Sender: FDA-Public Use
  Company Number: CHPA2006US03257

PATIENT
  Age: 26 Year
  Sex: Female
  Weight: 99.8 kg

DRUGS (2)
  1. DOAN'S EXTRA STRENGTH PILLS (NCH) (MAGNESIUM SALICYLATE) TABLET [Suspect]
     Indication: BACK PAIN
     Dosage: 1160 MG, ONCE/SINGLE
     Dates: start: 20060227, end: 20060227
  2. MIDOL [Suspect]
     Indication: BACK PAIN
     Dosage: 220 MG, ONCE/SINGLE, ORAL
     Route: 048
     Dates: start: 20060227

REACTIONS (5)
  - BACK INJURY [None]
  - GRAND MAL CONVULSION [None]
  - HAEMORRHAGE [None]
  - MUSCLE STRAIN [None]
  - SWOLLEN TONGUE [None]
